FAERS Safety Report 19153354 (Version 1)
Quarter: 2021Q2

REPORT INFORMATION
  Report Type: Report from Study
  Country: CA (occurrence: CA)
  Receive Date: 20210419
  Receipt Date: 20210419
  Transmission Date: 20210717
  Serious: Yes (Other)
  Sender: FDA-Public Use
  Company Number: CA-TAKEDA-2016TUS022688

PATIENT
  Age: 57 Year
  Sex: Female

DRUGS (8)
  1. VEDOLIZUMAB [Suspect]
     Active Substance: VEDOLIZUMAB
     Indication: COLITIS ULCERATIVE
     Dosage: 300 MILLIGRAM
     Route: 042
     Dates: start: 20161209, end: 20161209
  2. BENADRYL [Suspect]
     Active Substance: DIPHENHYDRAMINE HYDROCHLORIDE
     Indication: RASH
     Dosage: UNK
     Route: 065
     Dates: start: 20180824
  3. VEDOLIZUMAB [Suspect]
     Active Substance: VEDOLIZUMAB
     Dosage: 300 MILLIGRAM
     Route: 042
  4. VEDOLIZUMAB [Suspect]
     Active Substance: VEDOLIZUMAB
     Dosage: 300 MILLIGRAM
     Route: 042
  5. PREDNISONE. [Suspect]
     Active Substance: PREDNISONE
     Indication: PRODUCT USED FOR UNKNOWN INDICATION
     Dosage: UNK
     Route: 065
     Dates: end: 20161202
  6. CIPRALEX [Concomitant]
     Active Substance: ESCITALOPRAM OXALATE
     Dosage: UNK
  7. VEDOLIZUMAB [Suspect]
     Active Substance: VEDOLIZUMAB
     Dosage: 300 MILLIGRAM
     Route: 042
  8. VEDOLIZUMAB [Suspect]
     Active Substance: VEDOLIZUMAB
     Dosage: 300 MILLIGRAM
     Route: 042

REACTIONS (20)
  - Rash macular [Recovering/Resolving]
  - Lymphadenopathy [Unknown]
  - Fatigue [Not Recovered/Not Resolved]
  - Respiratory tract infection [Recovered/Resolved]
  - Abdominal pain [Recovering/Resolving]
  - Malaise [Not Recovered/Not Resolved]
  - Colitis ulcerative [Unknown]
  - Respiratory muscle weakness [Unknown]
  - Joint stiffness [Recovered/Resolved]
  - Chills [Not Recovered/Not Resolved]
  - Burning sensation [Not Recovered/Not Resolved]
  - Urinary tract infection [Not Recovered/Not Resolved]
  - Arthralgia [Recovered/Resolved]
  - Productive cough [Not Recovered/Not Resolved]
  - Asthenia [Recovered/Resolved]
  - Rash [Recovering/Resolving]
  - Nervousness [Not Recovered/Not Resolved]
  - Pain in jaw [Not Recovered/Not Resolved]
  - Feeling cold [Recovered/Resolved]
  - Paraesthesia [Unknown]

NARRATIVE: CASE EVENT DATE: 201612
